FAERS Safety Report 15476341 (Version 1)
Quarter: 2018Q4

REPORT INFORMATION
  Report Type: Spontaneous
  Country: JP (occurrence: JP)
  Receive Date: 20181009
  Receipt Date: 20181009
  Transmission Date: 20190205
  Serious: Yes (Other)
  Sender: FDA-Public Use
  Company Number: PHJP2015JP016712

PATIENT
  Age: 68 Year
  Sex: Male

DRUGS (1)
  1. EXELON PATCH [Suspect]
     Active Substance: RIVASTIGMINE
     Indication: PRODUCT USED FOR UNKNOWN INDICATION
     Dosage: 1.9 MG/24H (PATCH 2.5 CM2, 4.5 MG RIVASTIGMINE BASE)
     Route: 062

REACTIONS (2)
  - Mental impairment [Unknown]
  - Product adhesion issue [Unknown]
